FAERS Safety Report 7053419-7 (Version None)
Quarter: 2010Q4

REPORT INFORMATION
  Report Type: 
  Country: None (occurrence: None)
  Receive Date: 20101020
  Receipt Date: 20100512
  Transmission Date: 20110411
  Serious: No
  Sender: FDA-Public Use
  Company Number: US-PFIZER INC-2010059936

PATIENT
  Sex: Female

DRUGS (6)
  1. NEURONTIN [Suspect]
     Dosage: UNK
  2. LYRICA [Suspect]
     Indication: FIBROMYALGIA
     Dosage: UNK
     Dates: start: 20100401
  3. LYRICA [Suspect]
     Indication: PAIN
  4. LASIX [Suspect]
     Dosage: UNK
  5. OXYCODONE [Suspect]
     Dosage: UNK
  6. DURAGESIC-100 [Suspect]
     Dosage: UNK

REACTIONS (3)
  - BURNING SENSATION [None]
  - PAIN IN EXTREMITY [None]
  - POOR QUALITY SLEEP [None]
